FAERS Safety Report 7165963-2 (Version None)
Quarter: 2010Q4

REPORT INFORMATION
  Report Type: 
  Country: None (occurrence: None)
  Receive Date: 20101216
  Receipt Date: 20101204
  Transmission Date: 20110411
  Serious: No
  Sender: FDA-Public Use
  Company Number: US-BIOGENIDEC-2010BI042788

PATIENT
  Age: 43 Year
  Sex: Female

DRUGS (1)
  1. TYSABRI [Suspect]
     Indication: MULTIPLE SCLEROSIS
     Route: 042
     Dates: start: 20101101

REACTIONS (5)
  - BALANCE DISORDER [None]
  - DEPRESSED MOOD [None]
  - EMOTIONAL DISORDER [None]
  - HYPOAESTHESIA [None]
  - MOBILITY DECREASED [None]
